FAERS Safety Report 11762899 (Version 1)
Quarter: 2015Q4

REPORT INFORMATION
  Report Type: Spontaneous
  Country: US (occurrence: US)
  Receive Date: 20151120
  Receipt Date: 20151120
  Transmission Date: 20160304
  Serious: No
  Sender: FDA-Public Use
  Company Number: US-ELI_LILLY_AND_COMPANY-US201211005829

PATIENT
  Sex: Female

DRUGS (1)
  1. FORTEO [Suspect]
     Active Substance: TERIPARATIDE
     Dosage: UNK UNK, QD
     Route: 065
     Dates: start: 20120515

REACTIONS (9)
  - Blood pressure increased [Unknown]
  - Muscular weakness [Unknown]
  - Tongue blistering [Unknown]
  - Constipation [Unknown]
  - General physical health deterioration [Unknown]
  - Fatigue [Unknown]
  - Hypersomnia [Unknown]
  - Petechiae [Unknown]
  - Vomiting [Unknown]

NARRATIVE: CASE EVENT DATE: 2012
